FAERS Safety Report 8369207-5 (Version None)
Quarter: 2012Q2

REPORT INFORMATION
  Report Type: 
  Country: None (occurrence: None)
  Receive Date: 20120517
  Receipt Date: 20120517
  Transmission Date: 20120825
  Serious: No
  Sender: FDA-Public Use
  Company Number: None

PATIENT
  Sex: Male
  Weight: 81.4 kg

DRUGS (2)
  1. GAMUNEX [Suspect]
  2. GAMUNEX [Suspect]
     Indication: IMMUNODEFICIENCY COMMON VARIABLE
     Dosage: 65GM EVERY 3 WEEKS IV
     Route: 042
     Dates: start: 20080117, end: 20120425

REACTIONS (2)
  - GASTROINTESTINAL DISORDER [None]
  - FAECALOMA [None]
